FAERS Safety Report 16204909 (Version 1)
Quarter: 2019Q2

REPORT INFORMATION
  Report Type: Spontaneous
  Country: US (occurrence: US)
  Receive Date: 20190416
  Receipt Date: 20190416
  Transmission Date: 20190711
  Serious: No
  Sender: FDA-Public Use
  Company Number: US-HERITAGE PHARMACEUTICALS-2019HTG00014

PATIENT
  Sex: Female
  Weight: 80.73 kg

DRUGS (2)
  1. BENAZEPRIL [Concomitant]
     Active Substance: BENAZEPRIL HYDROCHLORIDE
     Dosage: UNK
     Dates: end: 201901
  2. VERAPAMIL HYDROCHLORIDE. [Suspect]
     Active Substance: VERAPAMIL HYDROCHLORIDE
     Indication: HYPERTENSION
     Dosage: 120 MG, 2X/DAY (1 TABLET IN THE MORNING AND 1 AT NIGHT)
     Route: 048
     Dates: start: 2018, end: 201812

REACTIONS (3)
  - Drug ineffective [Recovered/Resolved]
  - Allergic reaction to excipient [Recovered/Resolved]
  - Hypertension [Recovered/Resolved]

NARRATIVE: CASE EVENT DATE: 2018
